FAERS Safety Report 6746884-3 (Version None)
Quarter: 2010Q2

REPORT INFORMATION
  Report Type: 
  Country: None (occurrence: None)
  Receive Date: 20100528
  Receipt Date: 20091113
  Transmission Date: 20101027
  Serious: No
  Sender: FDA-Public Use
  Company Number: US-ASTRAZENECA-2009SE31617

PATIENT
  Age: 42 Year
  Sex: Male

DRUGS (1)
  1. PRILOSEC OTC [Suspect]
     Route: 048

REACTIONS (6)
  - ANXIETY [None]
  - INSOMNIA [None]
  - NERVOUSNESS [None]
  - NIGHT SWEATS [None]
  - VISION BLURRED [None]
  - VISUAL IMPAIRMENT [None]
